FAERS Safety Report 15848228 (Version 1)
Quarter: 2019Q1

REPORT INFORMATION
  Report Type: Spontaneous
  Country: BR (occurrence: BR)
  Receive Date: 20190121
  Receipt Date: 20190121
  Transmission Date: 20190417
  Serious: Yes (Hospitalization)
  Sender: FDA-Public Use
  Company Number: BR-TEVA-2019-BR-1001073

PATIENT
  Sex: Female

DRUGS (6)
  1. COPAXONE [Suspect]
     Active Substance: GLATIRAMER ACETATE
     Indication: RELAPSING-REMITTING MULTIPLE SCLEROSIS
     Route: 065
     Dates: start: 20040112, end: 2017
  2. FLUOXETINE [Concomitant]
     Active Substance: FLUOXETINE HYDROCHLORIDE
     Dosage: 3 TABLETS DAILY
  3. AMITRIPTYLINE [Concomitant]
     Active Substance: AMITRIPTYLINE
  4. NAPROXEN. [Concomitant]
     Active Substance: NAPROXEN
     Dates: start: 2012
  5. AZATHIOPRINE. [Concomitant]
     Active Substance: AZATHIOPRINE
  6. CARBAMAZEPINE. [Concomitant]
     Active Substance: CARBAMAZEPINE
     Dates: start: 2004

REACTIONS (3)
  - Blindness unilateral [Recovered/Resolved with Sequelae]
  - Motor dysfunction [Recovered/Resolved with Sequelae]
  - Multiple sclerosis relapse [Recovered/Resolved with Sequelae]
